FAERS Safety Report 15631158 (Version 2)
Quarter: 2018Q4

REPORT INFORMATION
  Report Type: Spontaneous
  Country: NL (occurrence: NL)
  Receive Date: 20181119
  Receipt Date: 20181120
  Transmission Date: 20190205
  Serious: Yes (Other)
  Sender: FDA-Public Use
  Company Number: NL-TEVA-2018-NL-961270

PATIENT
  Age: 40 Year
  Sex: Female
  Weight: 80 kg

DRUGS (3)
  1. OXYCODON AUROBINDO TABLET MET GEREGULEERDE AFGIFTE, 10 MG (MILLIGRAM)O [Suspect]
     Active Substance: OXYCODONE HYDROCHLORIDE
     Indication: NEURALGIA
  2. OXYCODON AUROBINDO TABLET MET GEREGULEERDE AFGIFTE, 10 MG (MILLIGRAM)O [Suspect]
     Active Substance: OXYCODONE HYDROCHLORIDE
     Indication: HERNIA
     Dosage: 4 TIMES A DAY 2,AUROBINDO TABLET WITH REGULATED RELEASE, 10 MG (MILLIGRAM)OXYCODON HCL AUROBINDO RET
     Route: 065
     Dates: start: 201804
  3. OXYCODON SNELWERKEND 10 MG [Concomitant]
     Active Substance: OXYCODONE
     Dosage: IF NECESSARY AT PEAK PAIN
     Route: 065

REACTIONS (6)
  - Nausea [Recovered/Resolved]
  - Syncope [Recovered/Resolved]
  - Diarrhoea [Recovered/Resolved]
  - Therapeutic response unexpected [Recovering/Resolving]
  - Visual impairment [Recovered/Resolved]
  - Malaise [Recovered/Resolved]

NARRATIVE: CASE EVENT DATE: 20180710
